APPROVED DRUG PRODUCT: DORZOLAMIDE HYDROCHLORIDE
Active Ingredient: DORZOLAMIDE HYDROCHLORIDE
Strength: EQ 2% BASE
Dosage Form/Route: SOLUTION/DROPS;OPHTHALMIC
Application: A202053 | Product #001 | TE Code: AT
Applicant: REGCON HOLDINGS LLC
Approved: Sep 11, 2014 | RLD: No | RS: No | Type: RX